FAERS Safety Report 8802966 (Version 4)
Quarter: 2014Q1

REPORT INFORMATION
  Report Type: Spontaneous
  Country: US (occurrence: US)
  Receive Date: 20120924
  Receipt Date: 20140128
  Transmission Date: 20141002
  Serious: Yes (Hospitalization, Disabling, Other)
  Sender: FDA-Public Use
  Company Number: US-009507513-1209USA005538

PATIENT
  Sex: Female
  Weight: 78.5 kg

DRUGS (7)
  1. FOSAMAX [Suspect]
     Indication: OSTEOPENIA
     Dosage: 70 MG, QW
     Route: 048
     Dates: start: 20031230, end: 20080509
  2. FOSAMAX PLUS D [Suspect]
     Indication: OSTEOPOROSIS
     Dosage: 70/2800 MG, QW
     Route: 048
     Dates: start: 20071130, end: 20080509
  3. FOSAMAX PLUS D [Suspect]
     Indication: PROPHYLAXIS
  4. FOSAMAX [Suspect]
     Indication: OSTEOPOROSIS
     Dosage: 70 MG, QW
     Route: 048
     Dates: start: 20081009
  5. FOSAMAX [Suspect]
     Indication: PROPHYLAXIS
  6. ALENDRONATE SODIUM [Suspect]
     Indication: OSTEOPENIA
     Dosage: 70 MG, QW
     Dates: start: 20100208, end: 20110805
  7. CALCIUM (UNSPECIFIED) [Concomitant]
     Dosage: 1000 MG, UNK
     Dates: start: 2000, end: 2012

REACTIONS (21)
  - Intramedullary rod insertion [Unknown]
  - Arthroscopy [Unknown]
  - Carpal tunnel decompression [Unknown]
  - Cystopexy [Unknown]
  - Femur fracture [Not Recovered/Not Resolved]
  - Vitamin D deficiency [Unknown]
  - Fungal infection [Unknown]
  - Osteoarthritis [Unknown]
  - Carpal tunnel syndrome [Unknown]
  - Hysterectomy [Unknown]
  - Joint lock [Unknown]
  - Cataract [Unknown]
  - Joint range of motion decreased [Unknown]
  - Bursitis [Unknown]
  - Muscular weakness [Unknown]
  - Gout [Unknown]
  - Herpes zoster [Unknown]
  - Herpes zoster [Unknown]
  - Sciatica [Unknown]
  - Myalgia [Unknown]
  - Arthralgia [Recovering/Resolving]
